FAERS Safety Report 15989249 (Version 1)
Quarter: 2019Q1

REPORT INFORMATION
  Report Type: Spontaneous
  Country: US (occurrence: US)
  Receive Date: 20190125
  Receipt Date: 20190125
  Transmission Date: 20190418
  Serious: Yes (Hospitalization)
  Sender: FDA-Public Use
  Company Number: None

PATIENT
  Age: 80 Year
  Sex: Male

DRUGS (2)
  1. IBUPROFEN. [Suspect]
     Active Substance: IBUPROFEN
     Indication: PAIN
     Route: 048
     Dates: start: 20190102, end: 20190104
  2. APIXABAN [Suspect]
     Active Substance: APIXABAN
     Indication: ATRIAL FIBRILLATION
     Route: 048
     Dates: start: 20181004

REACTIONS (6)
  - Malaise [None]
  - Dizziness [None]
  - Wound infection [None]
  - Groin infection [None]
  - Gastrointestinal haemorrhage [None]
  - Faeces discoloured [None]

NARRATIVE: CASE EVENT DATE: 20190104
